FAERS Safety Report 19039630 (Version 1)
Quarter: 2021Q1

REPORT INFORMATION
  Report Type: Spontaneous
  Country: GB (occurrence: GB)
  Receive Date: 20210322
  Receipt Date: 20210322
  Transmission Date: 20210420
  Serious: Yes (Other)
  Sender: FDA-Public Use
  Company Number: GB-ABBVIE-21P-167-3822709-00

PATIENT
  Age: 71 Year
  Sex: Male
  Weight: 87 kg

DRUGS (5)
  1. EDOXABAN [Concomitant]
     Active Substance: EDOXABAN TOSYLATE
     Indication: PRODUCT USED FOR UNKNOWN INDICATION
  2. PROSTAP 3 [Suspect]
     Active Substance: LEUPROLIDE ACETATE
     Route: 065
  3. PROSTAP 3 [Suspect]
     Active Substance: LEUPROLIDE ACETATE
     Indication: PRODUCT USED FOR UNKNOWN INDICATION
     Dosage: DCS 11.25MG
     Route: 051
     Dates: end: 202010
  4. BICALUTAMID [Suspect]
     Active Substance: BICALUTAMIDE
     Indication: PROSTATE CANCER
     Route: 048
     Dates: end: 202010
  5. BICALUTAMID [Suspect]
     Active Substance: BICALUTAMIDE
     Route: 065

REACTIONS (2)
  - Loss of consciousness [Recovered/Resolved with Sequelae]
  - Palpitations [Recovered/Resolved with Sequelae]
